FAERS Safety Report 18667089 (Version 3)
Quarter: 2021Q1

REPORT INFORMATION
  Report Type: Spontaneous
  Country: FR (occurrence: FR)
  Receive Date: 20201228
  Receipt Date: 20210324
  Transmission Date: 20210419
  Serious: Yes (Hospitalization, Disabling, Other)
  Sender: FDA-Public Use
  Company Number: FR-AUROBINDO-AUR-APL-2020-062947

PATIENT
  Age: 47 Year
  Sex: Female

DRUGS (47)
  1. CYPROTERON MYLAN [Suspect]
     Active Substance: CYPROTERONE ACETATE
     Dosage: ONE TABLET 7 DAYS A MONTH; THEN 1/2 TABLET 20 DAYS PER MONTH
     Route: 048
     Dates: start: 20100701
  2. ANDROCUR [Suspect]
     Active Substance: CYPROTERONE ACETATE
     Dosage: ONE TABLET 7 DAYS A MONTH, THEN 1/2 TABLET 20 DAYS PER MONTH
     Route: 048
     Dates: end: 20040901
  3. LUTESTRAL [Concomitant]
     Indication: PRODUCT USED FOR UNKNOWN INDICATION
     Dosage: UNK
     Route: 065
     Dates: start: 19961005
  4. CYPROTERONE TABLET [Suspect]
     Active Substance: CYPROTERONE
     Dosage: ONE TABLET 7 DAYS A MONTH: THEN Y, TABLET 20 DAYS PER MONTH
     Route: 048
     Dates: start: 200507, end: 201506
  5. CYPROTERON MYLAN [Suspect]
     Active Substance: CYPROTERONE ACETATE
     Dosage: ONE TABLET 7 DAYS A MONTH; THEN 1/2 TABLET 20 DAYS PER MONTH
     Route: 048
     Dates: start: 20091105
  6. ACETATE DE CYPROTERONE EG [Interacting]
     Active Substance: CYPROTERONE ACETATE
     Indication: HYPERANDROGENISM
     Dosage: ONE TABLET 7 DAYS A MONTH: THEN Y, TABLET 20 DAYS PER MONTH
     Route: 048
     Dates: start: 20140329
  7. ANDROCUR [Suspect]
     Active Substance: CYPROTERONE ACETATE
     Indication: HYPERANDROGENISM
     Dosage: 1 DOSAGE FORM, 10 DAYS A MONTH
     Route: 048
     Dates: start: 19980217
  8. CYPROTERONE ACETATE ARROW 50MG SCORED TABLET [Suspect]
     Active Substance: CYPROTERONE ACETATE
     Dosage: ONE TABLET 7 DAYS A MONTH; THEN 1/2 TABLET 20 DAYS PER MONTH
     Route: 048
     Dates: start: 20110907, end: 20111125
  9. CYPROTERONE TABLET [Suspect]
     Active Substance: CYPROTERONE
     Indication: HYPERANDROGENISM
     Dosage: ONE TABLET 7 DAYS A MONTH: THEN Y, TABLET 20 DAYS PER MONTH
     Route: 048
     Dates: start: 2000, end: 20040901
  10. OMEPRAZOLE. [Suspect]
     Active Substance: OMEPRAZOLE
     Indication: PRODUCT USED FOR UNKNOWN INDICATION
     Dosage: UNK
     Route: 065
  11. CYPROTERON MYLAN [Suspect]
     Active Substance: CYPROTERONE ACETATE
     Dosage: ONE TABLET 7 DAYS A MONTH; THEN 1/2 TABLET 20 DAYS PER MONTH
     Route: 048
     Dates: start: 20100914
  12. CYPROTERONE TEVA [Interacting]
     Active Substance: CYPROTERONE
     Dosage: ONE TABLET 7 DAYS A MONTH; THEN 1/2 TABLET 20 DAYS PER MONTH
     Route: 048
     Dates: start: 20110404
  13. CYPROTERONE BIOGARAN [Interacting]
     Active Substance: CYPROTERONE ACETATE
     Indication: HYPERANDROGENISM
     Dosage: ONE TABLET 7 DAYS A MONTH: THEN Y, TABLET 20 DAYS PER MONTH
     Route: 048
     Dates: start: 20130503
  14. CYPROTERONE BIOGARAN [Interacting]
     Active Substance: CYPROTERONE ACETATE
     Dosage: ONE TABLET 7 DAYS A MONTH: THEN Y, TABLET 20 DAYS PER MONTH
     Route: 048
     Dates: start: 20140122
  15. CYPROTERONE BIOGARAN [Interacting]
     Active Substance: CYPROTERONE ACETATE
     Dosage: ONE TABLET 7 DAYS A MONTH: THEN Y, TABLET 20 DAYS PER MONTH
     Route: 048
     Dates: start: 20140513
  16. ANDROCUR [Suspect]
     Active Substance: CYPROTERONE ACETATE
     Dosage: 1 DOSAGE FORM, DAILY
     Route: 065
     Dates: start: 19990723
  17. OROMONE [Concomitant]
     Active Substance: ESTRADIOL
     Indication: PRODUCT USED FOR UNKNOWN INDICATION
     Dosage: ONE TABLET 20 DAYS PER MONTH
     Route: 065
     Dates: start: 2005, end: 2013
  18. CYPROTERONE ACETATE ARROW 50MG SCORED TABLET [Suspect]
     Active Substance: CYPROTERONE ACETATE
     Indication: HYPERANDROGENISM
     Dosage: ONE TABLET 7 DAYS A MONTH; THEN 1/2 TABLET 20 DAYS PER MONTH
     Route: 048
     Dates: start: 20100409, end: 20100701
  19. CYPROTERONE ACETATE ARROW 50MG SCORED TABLET [Suspect]
     Active Substance: CYPROTERONE ACETATE
     Dosage: ONE TABLET 7 DAYS A MONTH; THEN 1/2 TABLET 20 DAYS PER MONTH
     Route: 048
     Dates: start: 20120102, end: 20120326
  20. CYPROTERON MYLAN [Suspect]
     Active Substance: CYPROTERONE ACETATE
     Dosage: ONE TABLET 7 DAYS A MONTH; THEN 1/2 TABLET 20 DAYS PER MONTH
     Route: 048
     Dates: start: 20091218
  21. CYPROTERON MYLAN [Suspect]
     Active Substance: CYPROTERONE ACETATE
     Dosage: ONE TABLET 7 DAYS A MONTH; THEN 1/2 TABLET 20 DAYS PER MONTH
     Route: 048
     Dates: start: 20110728
  22. ACETATE DE CYPROTERONE EG [Interacting]
     Active Substance: CYPROTERONE ACETATE
     Dosage: ONE TABLET 7 DAYS A MONTH: THEN Y, TABLET 20 DAYS PER MONTH
     Route: 048
     Dates: start: 20140712
  23. ANDROCUR [Suspect]
     Active Substance: CYPROTERONE ACETATE
     Dosage: 0.5 DOSAGE FORM, 21 OR 28 DAYS A MONTH
     Route: 048
  24. ANDROCUR [Suspect]
     Active Substance: CYPROTERONE ACETATE
     Dosage: 1 DOSAGE FORM, DAILY
     Route: 065
     Dates: start: 20000916
  25. ZOMIG [Concomitant]
     Active Substance: ZOLMITRIPTAN
     Indication: MIGRAINE
     Dosage: 12 DOSAGE FORM, PER MONTH
     Route: 065
  26. CYPROTERON MYLAN [Suspect]
     Active Substance: CYPROTERONE ACETATE
     Dosage: ONE TABLET 7 DAYS A MONTH; THEN 1/2 TABLET 20 DAYS PER MONTH
     Route: 048
     Dates: start: 20140603
  27. CYPROTERONE [Suspect]
     Active Substance: CYPROTERONE
     Dosage: ONE TABLET 7 DAYS A MONTH; THEN 1/2 TABLET 20 DAYS PER MONTH
     Route: 048
     Dates: start: 20121016
  28. ANDROCUR [Suspect]
     Active Substance: CYPROTERONE ACETATE
     Dosage: 1/2 TABLET 7 DAYS A MONTH, THEN ONE TABLET 7 DAYS A MONTH, THEN 1/2 TABLET 20 DAYS A MONTH
     Route: 048
     Dates: start: 200507, end: 201506
  29. TRINORDIOL [Concomitant]
     Active Substance: ETHINYL ESTRADIOL\LEVONORGESTREL
     Dosage: UNK
     Route: 065
     Dates: start: 19990723
  30. ALMOGRAN [Concomitant]
     Active Substance: ALMOTRIPTAN MALATE
     Indication: MIGRAINE
     Dosage: UNK
     Route: 065
  31. CYPROTERON MYLAN [Suspect]
     Active Substance: CYPROTERONE ACETATE
     Dosage: ONE TABLET 7 DAYS A MONTH; THEN 1/2 TABLET 20 DAYS PER MONTH
     Route: 048
     Dates: start: 20091002
  32. CYPROTERON MYLAN [Suspect]
     Active Substance: CYPROTERONE ACETATE
     Dosage: ONE TABLET 7 DAYS A MONTH; THEN 1/2 TABLET 20 DAYS PER MONTH
     Route: 048
     Dates: start: 20100302
  33. CYPROTERON MYLAN [Suspect]
     Active Substance: CYPROTERONE ACETATE
     Dosage: ONE TABLET 7 DAYS A MONTH; THEN 1/2 TABLET 20 DAYS PER MONTH
     Route: 048
     Dates: start: 20101019
  34. CYPROTERONE BIOGARAN [Interacting]
     Active Substance: CYPROTERONE ACETATE
     Dosage: ONE TABLET 7 DAYS A MONTH: THEN Y, TABLET 20 DAYS PER MONTH
     Route: 048
     Dates: start: 20130612
  35. CYCLEANE [Concomitant]
     Active Substance: DESOGESTREL\ETHINYL ESTRADIOL
     Indication: PRODUCT USED FOR UNKNOWN INDICATION
     Dosage: UNK
     Route: 065
     Dates: start: 200007, end: 200408
  36. CYPROTERON MYLAN [Suspect]
     Active Substance: CYPROTERONE ACETATE
     Indication: HYPERANDROGENISM
     Dosage: ONE TABLET 7 DAYS A MONTH: THEN Y, TABLET 20 DAYS PER MONTH
     Route: 048
     Dates: start: 20090615
  37. CYPROTERONE SANDOZ [Interacting]
     Active Substance: CYPROTERONE ACETATE
     Indication: HYPERANDROGENISM
     Dosage: ONE TABLET 7 DAYS A MONTH; THEN 1/2 TABLET 20 DAYS PER MONTH
     Route: 048
     Dates: start: 20110616
  38. CYPROTERONE [Suspect]
     Active Substance: CYPROTERONE
     Indication: HYPERANDROGENISM
     Dosage: ONE TABLET 7 DAYS A MONTH; THEN 1/2 TABLET 20 DAYS PER MONTH
     Route: 048
     Dates: start: 20111125
  39. CYPROTERONE [Suspect]
     Active Substance: CYPROTERONE
     Dosage: ONE TABLET 7 DAYS A MONTH; THEN 1/2 TABLET 20 DAYS PER MONTH
     Route: 048
     Dates: start: 20120326
  40. CYPROTERONE BIOGARAN [Interacting]
     Active Substance: CYPROTERONE ACETATE
     Dosage: ONE TABLET 7 DAYS A MONTH: THEN Y, TABLET 20 DAYS PER MONTH
     Route: 048
     Dates: start: 20130827
  41. ANDROCUR [Suspect]
     Active Substance: CYPROTERONE ACETATE
     Dosage: 1 DOSAGE FORM, 6 DAYS A MONTH
     Route: 048
  42. KEPPRA [Suspect]
     Active Substance: LEVETIRACETAM
     Indication: EPILEPSY
     Dosage: UNK
     Route: 048
     Dates: start: 201408, end: 20141111
  43. CYPROTERONE ACETATE ARROW 50MG SCORED TABLET [Suspect]
     Active Substance: CYPROTERONE ACETATE
     Dosage: ONE TABLET 7 DAYS A MONTH; THEN 1/2 TABLET 20 DAYS PER MONTH
     Route: 048
     Dates: start: 20130111, end: 20130503
  44. CYPROTERONE TEVA [Interacting]
     Active Substance: CYPROTERONE
     Indication: HYPERANDROGENISM
     Dosage: ONE TABLET 7 DAYS A MONTH; THEN 1/2 TABLET 20 DAYS PER MONTH
     Route: 048
     Dates: start: 20101206
  45. CYPROTERONE [Suspect]
     Active Substance: CYPROTERONE
     Dosage: ONE TABLET 7 DAYS A MONTH; THEN 1/2 TABLET 20 DAYS PER MONTH
     Route: 048
     Dates: start: 20120720
  46. CYPROTERONE BIOGARAN [Interacting]
     Active Substance: CYPROTERONE ACETATE
     Dosage: ONE TABLET 7 DAYS A MONTH: THEN Y, TABLET 20 DAYS PER MONTH
     Route: 048
     Dates: start: 20130926
  47. TRINORDIOL [Concomitant]
     Active Substance: ETHINYL ESTRADIOL\LEVONORGESTREL
     Indication: PRODUCT USED FOR UNKNOWN INDICATION
     Dosage: UNK
     Route: 065
     Dates: start: 19980217, end: 202007

REACTIONS (10)
  - Condition aggravated [Unknown]
  - Fatigue [Not Recovered/Not Resolved]
  - Product prescribing error [Unknown]
  - Meningioma [Recovered/Resolved with Sequelae]
  - Tension headache [Not Recovered/Not Resolved]
  - Contraindicated product prescribed [Unknown]
  - Sleep disorder [Not Recovered/Not Resolved]
  - Impaired work ability [Unknown]
  - Headache [Not Recovered/Not Resolved]
  - Intracranial tumour haemorrhage [Recovered/Resolved]

NARRATIVE: CASE EVENT DATE: 2008
